FAERS Safety Report 21550623 (Version 1)
Quarter: 2022Q4

REPORT INFORMATION
  Report Type: Report from Study
  Country: GB (occurrence: GB)
  Receive Date: 20221103
  Receipt Date: 20221103
  Transmission Date: 20230113
  Serious: Yes (Hospitalization, Other)
  Sender: FDA-Public Use
  Company Number: GB-FEDR-MF-002-5011001-20200529-0001SG

PATIENT
  Age: 69 Year
  Sex: Male
  Weight: 76 kg

DRUGS (11)
  1. ATORVASTATIN [Concomitant]
     Active Substance: ATORVASTATIN
     Indication: Hyperlipidaemia
     Dosage: 40 MG X 1 X 1 DAYS
     Route: 048
     Dates: start: 201303, end: 20200117
  2. FEXOFENADINE [Concomitant]
     Active Substance: FEXOFENADINE HYDROCHLORIDE
     Indication: Pruritus
     Dosage: 180 MG X 1 X 1 DAYS
     Route: 048
     Dates: start: 201911, end: 20191222
  3. ACETAMINOPHEN [Concomitant]
     Active Substance: ACETAMINOPHEN
     Indication: Analgesic therapy
     Route: 048
  4. RAMIPRIL [Concomitant]
     Active Substance: RAMIPRIL
     Indication: Hypertension
     Route: 048
     Dates: start: 200807
  5. RANITIDINE [Concomitant]
     Active Substance: RANITIDINE
     Indication: Hiatus hernia
     Dosage: 300 MG X 1 X 1 DAYS
     Route: 048
     Dates: start: 2015, end: 20200114
  6. RANITIDINE [Concomitant]
     Active Substance: RANITIDINE
     Route: 048
     Dates: start: 20200120
  7. ALLOPURINOL [Concomitant]
     Active Substance: ALLOPURINOL
     Indication: Gout
     Route: 048
     Dates: start: 201709, end: 20200120
  8. CLARITHROMYCIN [Concomitant]
     Active Substance: CLARITHROMYCIN
     Indication: Upper respiratory tract infection
     Route: 048
     Dates: start: 20191125, end: 20191202
  9. COLCHICINE [Concomitant]
     Active Substance: COLCHICINE
     Indication: Gout
     Route: 048
     Dates: start: 20191115, end: 20191203
  10. MAGNESIUM ASPTARTATE [Concomitant]
     Indication: Hypomagnesaemia
     Route: 048
     Dates: start: 20191231
  11. PREDNISOLONE [Concomitant]
     Active Substance: PREDNISOLONE
     Indication: Primary myelofibrosis
     Route: 048
     Dates: start: 20191202, end: 20191216

REACTIONS (4)
  - Chronic kidney disease [Recovered/Resolved]
  - Leukocytosis [Recovered/Resolved]
  - Ejection fraction decreased [Not Recovered/Not Resolved]
  - Oedema peripheral [Not Recovered/Not Resolved]

NARRATIVE: CASE EVENT DATE: 20200514
